FAERS Safety Report 20912719 (Version 1)
Quarter: 2022Q2

REPORT INFORMATION
  Report Type: Spontaneous
  Country: DE (occurrence: DE)
  Receive Date: 20220603
  Receipt Date: 20220603
  Transmission Date: 20220721
  Serious: Yes (Other)
  Sender: FDA-Public Use
  Company Number: DE-BRISTOL-MYERS SQUIBB COMPANY-2022-049545

PATIENT
  Age: 64 Year
  Sex: Male

DRUGS (7)
  1. OPDIVO [Suspect]
     Active Substance: NIVOLUMAB
     Indication: Non-small cell lung cancer
     Dosage: DOSE : IPILI. 1 MG/KG NIVO. 360 MG;     FREQ : UNAVAILABLE
     Route: 065
     Dates: start: 20220331
  2. OPDIVO [Suspect]
     Active Substance: NIVOLUMAB
     Route: 065
     Dates: start: 20220428
  3. YERVOY [Suspect]
     Active Substance: IPILIMUMAB
     Indication: Non-small cell lung cancer
     Route: 065
     Dates: start: 20220331
  4. CARBOPLATIN [Concomitant]
     Active Substance: CARBOPLATIN
     Indication: Non-small cell lung cancer
     Dosage: AUC5
     Dates: start: 20220331
  5. CARBOPLATIN [Concomitant]
     Active Substance: CARBOPLATIN
     Dosage: AUC5
     Dates: start: 20220428
  6. PACLITAXEL [Concomitant]
     Active Substance: PACLITAXEL
     Indication: Non-small cell lung cancer
     Dates: start: 20220331
  7. PACLITAXEL [Concomitant]
     Active Substance: PACLITAXEL
     Dates: start: 20220428

REACTIONS (1)
  - Acute myocardial infarction [Unknown]

NARRATIVE: CASE EVENT DATE: 20220518
